FAERS Safety Report 20562997 (Version 1)
Quarter: 2022Q1

REPORT INFORMATION
  Report Type: Spontaneous
  Country: FR (occurrence: FR)
  Receive Date: 20220307
  Receipt Date: 20220307
  Transmission Date: 20220424
  Serious: Yes (Disabling, Congenital Anomaly, Other)
  Sender: FDA-Public Use
  Company Number: FR-ABBVIE-22K-056-4297392-00

PATIENT
  Sex: Female

DRUGS (1)
  1. VALPROATE SODIUM [Suspect]
     Active Substance: VALPROATE SODIUM
     Indication: Maternal exposure timing unspecified
     Route: 064

REACTIONS (22)
  - Jaundice neonatal [Unknown]
  - Premature baby [Unknown]
  - Petit mal epilepsy [Unknown]
  - Psychiatric symptom [Unknown]
  - Speech disorder developmental [Unknown]
  - Gait disturbance [Unknown]
  - Cognitive linguistic deficit [Unknown]
  - Memory impairment [Unknown]
  - Cognitive disorder [Unknown]
  - Dysgraphia [Unknown]
  - Mental disorder [Unknown]
  - Mental impairment [Unknown]
  - Attention deficit hyperactivity disorder [Unknown]
  - Educational problem [Unknown]
  - Nasopharyngitis [Unknown]
  - Disturbance in attention [Unknown]
  - Malaise [Unknown]
  - Neural tube defect [Unknown]
  - Autism spectrum disorder [Unknown]
  - Amnesia [Unknown]
  - Learning disorder [Unknown]
  - Foetal exposure during pregnancy [Unknown]
